FAERS Safety Report 5221457-2 (Version None)
Quarter: 2007Q1

REPORT INFORMATION
  Report Type: 
  Country: None (occurrence: None)
  Receive Date: 20070126
  Receipt Date: 20070112
  Transmission Date: 20070707
  Serious: Yes (Other)
  Sender: FDA-Public Use
  Company Number: US-SHR-US-2007-001114

PATIENT
  Age: 65 Year
  Sex: Male

DRUGS (2)
  1. BETASERON [Suspect]
     Dosage: 8 MIU, EVERY 2D
     Route: 058
     Dates: start: 20060623
  2. PREGABALIN [Suspect]
     Dosage: UNK, UNK
     Dates: start: 20061201

REACTIONS (1)
  - ATRIAL FIBRILLATION [None]
